FAERS Safety Report 5502188-8 (Version None)
Quarter: 2007Q4

REPORT INFORMATION
  Report Type: 
  Country: None (occurrence: None)
  Receive Date: 20071030
  Receipt Date: 20071022
  Transmission Date: 20080405
  Serious: Yes (Other)
  Sender: FDA-Public Use
  Company Number: GB-WYE-G00502907

PATIENT
  Sex: Female

DRUGS (2)
  1. VENLAFAXIINE HCL [Suspect]
  2. ABILIFY [Suspect]
     Route: 048

REACTIONS (2)
  - CARDIOTOXICITY [None]
  - SYNCOPE [None]
